FAERS Safety Report 6404112-2 (Version None)
Quarter: 2009Q4

REPORT INFORMATION
  Report Type: 
  Country: None (occurrence: None)
  Receive Date: 20091016
  Receipt Date: 20090826
  Transmission Date: 20100525
  Serious: Yes (Hospitalization)
  Sender: FDA-Public Use
  Company Number: US-ALEXION-A200900674

PATIENT
  Sex: Female

DRUGS (20)
  1. SOLIRIS [Suspect]
     Indication: PAROXYSMAL NOCTURNAL HAEMOGLOBINURIA
     Dosage: 600 MG, QW
     Route: 042
     Dates: start: 20081217, end: 20090101
  2. SOLIRIS [Suspect]
     Dosage: 900 MG, Q2W
     Route: 042
     Dates: start: 20090116
  3. DIGOXIN [Concomitant]
     Dosage: 0.125, QD
  4. MICARDIS [Concomitant]
     Dosage: 40, QD
  5. FOLIC ACID [Concomitant]
     Dosage: 1, QD
  6. PROZAC                             /00724401/ [Concomitant]
     Dosage: 20, QD
  7. SYNTHROID [Concomitant]
     Indication: HYPOTHYROIDISM
     Dosage: 15 UG, QD
  8. MICRO-K [Concomitant]
     Dosage: 10 MEQ, QD
  9. IMDUR [Concomitant]
     Dosage: 30, BID
  10. DARVOCET-N 100 [Concomitant]
     Indication: PAIN
     Dosage: PRN, BID TO TID
  11. FLOVENT [Concomitant]
     Dosage: 2 PUFFS, BID
  12. ALDACTONE [Concomitant]
     Dosage: 50, QD
  13. PROTONIX                           /01263201/ [Concomitant]
     Indication: GASTROOESOPHAGEAL REFLUX DISEASE
     Dosage: 40, QD
  14. LASIX [Concomitant]
     Dosage: 40, BID
  15. ATIVAN [Concomitant]
     Indication: ALCOHOL USE
     Dosage: 0.5, PRN, TID
  16. ACYCLOVIR [Concomitant]
  17. DILTIAZEM [Concomitant]
     Dosage: 240, QD
  18. SINGULAIR [Concomitant]
     Dosage: 10, QD
  19. ARIMIDEX [Concomitant]
     Dosage: 1 MG, QD
  20. SOLU-MEDROL [Concomitant]
     Dosage: UNK
     Route: 042
     Dates: start: 20090803

REACTIONS (3)
  - CARDIAC FAILURE CONGESTIVE [None]
  - CHRONIC OBSTRUCTIVE PULMONARY DISEASE [None]
  - PNEUMONIA [None]
